FAERS Safety Report 4315196-X (Version None)
Quarter: 2004Q1

REPORT INFORMATION
  Report Type: 
  Country: None (occurrence: None)
  Receive Date: 20040310
  Receipt Date: 20040225
  Transmission Date: 20041129
  Serious: Yes (Other)
  Sender: FDA-Public Use
  Company Number: US-JNJFOC-20040206220

PATIENT
  Age: 44 Year
  Sex: Female
  Weight: 113.3993 kg

DRUGS (19)
  1. INFLIXIMAB (INFLIXIMAB, RECOMBINANT) LYOPHILIZED POWDER [Suspect]
     Indication: RHEUMATOID ARTHRITIS
     Dosage: 600 MG, 1 IN 4 WEEK, INTRAVENOUS
     Route: 042
     Dates: start: 20011023, end: 20030403
  2. LOPRESSOR [Concomitant]
  3. MICROZIDE [Concomitant]
  4. FOLIC ACID [Concomitant]
  5. VICODIN [Concomitant]
  6. PREDNISONE [Concomitant]
  7. FELDENE [Concomitant]
  8. GLUCOTROL [Concomitant]
  9. DEPAKOTE [Concomitant]
  10. METHOTREXATE [Concomitant]
  11. DEPO-PROVERA SUSPENSION/INJ [Concomitant]
  12. METAMUCIL-2 [Concomitant]
  13. MULTIVITAMIN (MULTIVITAMINS) [Concomitant]
  14. POTASSIUM (POTASSIUM) [Concomitant]
  15. VITAMIN C (ASCORBIC ACID) [Concomitant]
  16. VITAMIN E [Concomitant]
  17. CALCIUM (CALCIUM) [Concomitant]
  18. TYLENOL [Concomitant]
  19. ROLAIDS (DIHYDROXYALUMINIUM SODIUM CARBONATE) [Concomitant]

REACTIONS (2)
  - CARDIAC DISORDER [None]
  - DYSPNOEA [None]
